FAERS Safety Report 6700208-6 (Version None)
Quarter: 2010Q2

REPORT INFORMATION
  Report Type: 
  Country: None (occurrence: None)
  Receive Date: 20100428
  Receipt Date: 20100419
  Transmission Date: 20101027
  Serious: Yes (Other)
  Sender: FDA-Public Use
  Company Number: DE-PFIZER INC-2010033651

PATIENT
  Age: 53 Year
  Sex: Female
  Weight: 85 kg

DRUGS (1)
  1. ZELDOX [Suspect]
     Dosage: 40 MG IN THE MORNING/80 MG IN THE EVENING
     Route: 048
     Dates: start: 20080101, end: 20080101

REACTIONS (2)
  - PARKINSONISM [None]
  - WAXY FLEXIBILITY [None]
